FAERS Safety Report 6806275-3 (Version None)
Quarter: 2010Q2

REPORT INFORMATION
  Report Type: 
  Country: None (occurrence: None)
  Receive Date: 20100629
  Receipt Date: 20080108
  Transmission Date: 20101027
  Serious: No
  Sender: FDA-Public Use
  Company Number: US-PFIZER INC-2008003743

PATIENT
  Sex: Female
  Weight: 86.18 kg

DRUGS (5)
  1. ZYVOX [Suspect]
     Indication: INFECTED SKIN ULCER
     Dates: start: 20080107
  2. METFORMIN HCL [Concomitant]
  3. LISINOPRIL [Concomitant]
  4. GLIPIZIDE [Concomitant]
  5. SITAGLIPTIN [Concomitant]

REACTIONS (4)
  - FEELING ABNORMAL [None]
  - INTENTIONAL DRUG MISUSE [None]
  - NAUSEA [None]
  - VOMITING [None]
